FAERS Safety Report 10594920 (Version 1)
Quarter: 2014Q4

REPORT INFORMATION
  Report Type: Spontaneous
  Country: US (occurrence: None)
  Receive Date: 20141119
  Receipt Date: 20141119
  Transmission Date: 20150529
  Serious: Yes (Other)
  Sender: FDA-Public Use
  Company Number: None

PATIENT
  Age: 74 Year
  Sex: Female
  Weight: 58.97 kg

DRUGS (2)
  1. VALTREX [Suspect]
     Active Substance: VALACYCLOVIR HYDROCHLORIDE
     Indication: ORAL HERPES
     Dosage: 2 PILLS/DAY, TWICE DAILY, TAKEN BY MOUTH
     Route: 048
     Dates: start: 20141012, end: 20141020
  2. VALTREX [Suspect]
     Active Substance: VALACYCLOVIR HYDROCHLORIDE
     Indication: PROPHYLAXIS
     Dosage: 2 PILLS/DAY, TWICE DAILY, TAKEN BY MOUTH
     Route: 048
     Dates: start: 20141012, end: 20141020

REACTIONS (12)
  - Pruritus [None]
  - Fall [None]
  - Agitation [None]
  - Confusional state [None]
  - Dizziness [None]
  - Abasia [None]
  - Therapy cessation [None]
  - Dysarthria [None]
  - Speech disorder [None]
  - Dysgraphia [None]
  - Pyrexia [None]
  - Rash [None]

NARRATIVE: CASE EVENT DATE: 20141018
